FAERS Safety Report 13893364 (Version 4)
Quarter: 2017Q3

REPORT INFORMATION
  Report Type: Spontaneous
  Country: US (occurrence: US)
  Receive Date: 20170822
  Receipt Date: 20170907
  Transmission Date: 20171127
  Serious: Yes (Other)
  Sender: FDA-Public Use
  Company Number: US-BAYER-2017-120350

PATIENT
  Age: 2 Year
  Sex: Female
  Weight: 9.52 kg

DRUGS (1)
  1. COPPERTONE WATERBABIES PURE AND SIMPLE SPF 50 [Suspect]
     Active Substance: OCTINOXATE\OCTISALATE\ZINC OXIDE
     Indication: THERAPEUTIC SKIN CARE TOPICAL
     Dosage: UNK
     Route: 061
     Dates: start: 20160326

REACTIONS (13)
  - Diarrhoea [Unknown]
  - Nausea [Unknown]
  - Rash papular [Unknown]
  - Sunburn [None]
  - Sunburn [Unknown]
  - Pyrexia [Unknown]
  - Blister [Unknown]
  - Pain [Unknown]
  - Vomiting [Unknown]
  - Pigmentation disorder [None]
  - Vomiting [None]
  - Scar [None]
  - Dysuria [None]

NARRATIVE: CASE EVENT DATE: 20160326
